FAERS Safety Report 8440382-7 (Version None)
Quarter: 2012Q2

REPORT INFORMATION
  Report Type: 
  Country: None (occurrence: None)
  Receive Date: 20120615
  Receipt Date: 20120606
  Transmission Date: 20120825
  Serious: Yes (Death, Hospitalization)
  Sender: FDA-Public Use
  Company Number: ES-ROCHE-802728

PATIENT
  Sex: Male
  Weight: 58.1 kg

DRUGS (11)
  1. PREDNISONE TAB [Concomitant]
     Indication: RHEUMATOID ARTHRITIS
     Route: 048
  2. EPOETIN [Concomitant]
     Indication: ANAEMIA
     Route: 058
  3. PREDNISONE TAB [Concomitant]
     Route: 048
  4. ISONIAZID [Concomitant]
     Indication: TUBERCULOSIS
     Dosage: DOSE REPORTE AS: 1500/B6
     Route: 048
     Dates: start: 20100924, end: 20110731
  5. LEVOTHYROXINE SODIUM [Concomitant]
     Indication: HYPOTHYROIDISM
     Route: 048
  6. CORTICOSTEROIDS (UNK INGREDIENTS) [Concomitant]
     Route: 048
  7. ATORVASTATIN CALCIUM [Concomitant]
     Indication: BLOOD CHOLESTEROL INCREASED
     Route: 048
  8. SEVELAMER [Concomitant]
     Indication: RENAL FAILURE CHRONIC
     Route: 048
  9. ACTEMRA [Suspect]
     Indication: RHEUMATOID ARTHRITIS
     Route: 042
  10. ACTEMRA [Suspect]
     Dosage: 11TH INFUSION
     Dates: start: 20111030, end: 20111030
  11. CALCITRIOL [Concomitant]
     Route: 048
     Dates: end: 20110308

REACTIONS (4)
  - AMYLOIDOSIS [None]
  - NEPHROPATHY [None]
  - PYREXIA [None]
  - EMBOLIC STROKE [None]
